FAERS Safety Report 24346839 (Version 2)
Quarter: 2024Q4

REPORT INFORMATION
  Report Type: Spontaneous
  Country: ZA (occurrence: ZA)
  Receive Date: 20240921
  Receipt Date: 20241018
  Transmission Date: 20250115
  Serious: Yes (Death, Hospitalization)
  Sender: MACLEODS
  Company Number: ZA-MACLEODS PHARMA-MAC2024049379

PATIENT

DRUGS (29)
  1. HYDROCHLOROTHIAZIDE\VALSARTAN [Suspect]
     Active Substance: HYDROCHLOROTHIAZIDE\VALSARTAN
     Indication: Hypertension
     Dosage: 80/12.5 MG TAKE ONE TABLET DAILY
     Route: 048
  2. BUDESONIDE\FORMOTEROL FUMARATE DIHYDRATE [Suspect]
     Active Substance: BUDESONIDE\FORMOTEROL FUMARATE DIHYDRATE
     Indication: Asthma
     Dosage: TAKE ONE INHALATION MORNING AND EVENING
  3. CEFUROXIME AXETIL [Suspect]
     Active Substance: CEFUROXIME AXETIL
     Indication: Product used for unknown indication
     Dosage: TAKE ONE TABLET EVERY TWELVE HOURS FOR THREE DAYS
     Route: 048
  4. ELIQUIS [Suspect]
     Active Substance: APIXABAN
     Indication: Anticoagulant therapy
     Dosage: TAKE ONE TABLET EVERY TWELVE HOURS
     Route: 048
  5. DAPAGLIFLOZIN [Suspect]
     Active Substance: DAPAGLIFLOZIN
     Indication: Diabetes mellitus
     Dosage: TAKE ONE TABLET DAILY
     Route: 048
  6. DIETARY SUPPLEMENT [Suspect]
     Active Substance: DIETARY SUPPLEMENT
     Indication: Product used for unknown indication
     Dosage: TAKE AS PRESCRIBED
     Route: 048
  7. AZITHROMYCIN [Suspect]
     Active Substance: AZITHROMYCIN
     Indication: Product used for unknown indication
     Dosage: 500 MG TAKE ONE TABLET DAILY
     Route: 048
  8. TAMIFLU [Suspect]
     Active Substance: OSELTAMIVIR PHOSPHATE
     Indication: Product used for unknown indication
     Dosage: 75 MG TAKE ONE CAPSULE TWICE A  DAY
     Route: 048
  9. PREDNISONE [Suspect]
     Active Substance: PREDNISONE
     Indication: Product used for unknown indication
     Dosage: 5 MG TAKE TWO TABLETS TWICE A DAY
     Route: 048
  10. MONTELUKAST SODIUM [Suspect]
     Active Substance: MONTELUKAST SODIUM
     Indication: Asthma
     Dosage: 10 MG TAKE A TABLET OF AT NIGHT
     Route: 048
  11. ACETYLCYSTEINE [Suspect]
     Active Substance: ACETYLCYSTEINE
     Indication: Product used for unknown indication
     Dosage: 600 MG TAKE ONE DISSOLVED IN WATER IN THE MORNING
     Route: 048
  12. MINERALS\VITAMINS [Suspect]
     Active Substance: MINERALS\VITAMINS
     Indication: Product used for unknown indication
     Route: 048
  13. FLUTICASONE PROPIONATE\SALMETEROL XINAFOATE [Suspect]
     Active Substance: FLUTICASONE PROPIONATE\SALMETEROL XINAFOATE
     Indication: Asthma
     Dosage: 50/500 MCG TAKE ONE INHALATION TWICE A DAY
  14. ZOLPIDEM TARTRATE [Suspect]
     Active Substance: ZOLPIDEM TARTRATE
     Indication: Sleep disorder
     Dosage: 10 MG TAKE A TABLET OF AT NIGHT
     Route: 048
  15. BISOPROLOL FUMARATE [Suspect]
     Active Substance: BISOPROLOL FUMARATE
     Indication: Hypertension
     Dosage: 5 MG TAKE HALF A TABLET IN THE MORNING
     Route: 048
  16. ACETAMINOPHEN [Suspect]
     Active Substance: ACETAMINOPHEN
     Indication: Product used for unknown indication
     Dosage: 500 MG AS PER PACKING
     Route: 048
  17. HERBALS [Suspect]
     Active Substance: HERBALS
     Indication: Product used for unknown indication
     Dosage: AS PER  PACKING
     Route: 048
  18. CHLORPHENIRAMINE MALEATE [Suspect]
     Active Substance: CHLORPHENIRAMINE MALEATE
     Indication: Hypersensitivity
     Route: 048
  19. OXYMETAZOLINE HYDROCHLORIDE [Suspect]
     Active Substance: OXYMETAZOLINE HYDROCHLORIDE
     Indication: Product used for unknown indication
     Dosage: 0.5 MG AS DIRECTED
     Route: 045
  20. HERBALS [Suspect]
     Active Substance: HERBALS
     Indication: Product used for unknown indication
     Dosage: AS  DIRECTED
     Route: 048
  21. HYDROCHLOROTHIAZIDE\VALSARTAN [Suspect]
     Active Substance: HYDROCHLOROTHIAZIDE\VALSARTAN
     Indication: Hypertension
     Dosage: 80/12.5 MG TAKE ONE TABLET DAILY
     Route: 048
  22. FUROSEMIDE [Suspect]
     Active Substance: FUROSEMIDE
     Indication: Hypertension
     Dosage: 40 MG TAKE ONE TABLET DAILY
     Route: 048
  23. HYDROCHLOROTHIAZIDE\VALSARTAN [Suspect]
     Active Substance: HYDROCHLOROTHIAZIDE\VALSARTAN
     Indication: Hypertension
     Dosage: 80/12.5 MG TAKE ONE TABLET DAILY
     Route: 048
  24. ESCITALOPRAM [Suspect]
     Active Substance: ESCITALOPRAM OXALATE
     Indication: Depression
     Dosage: 5 MG TAKE ONE TABLET IN THE MORNING
     Route: 048
  25. ACETAMINOPHEN\TRAMADOL [Suspect]
     Active Substance: ACETAMINOPHEN\TRAMADOL
     Indication: Pain
     Route: 048
  26. ZOLPIDEM TARTRATE [Suspect]
     Active Substance: ZOLPIDEM TARTRATE
     Indication: Sleep disorder
     Dosage: 10 MG TAKE A TABLET OF AT NIGHT
     Route: 048
  27. SPIRONOLACTONE [Suspect]
     Active Substance: SPIRONOLACTONE
     Indication: Hypertension
     Dosage: 25 MG TAKE ONE TABLET IN THE MORNING
     Route: 048
  28. MEFENAMIC ACID [Suspect]
     Active Substance: MEFENAMIC ACID
     Indication: Pain
     Dosage: 250 MG TAKE TWO CAPSULES THREE TIMES A DAY
     Route: 048
  29. PHENERGAN [Suspect]
     Active Substance: PROMETHAZINE HYDROCHLORIDE
     Indication: Product used for unknown indication
     Dosage: 25 MG TAKE ONE TABLET IN THE EVENING
     Route: 048

REACTIONS (3)
  - Death [Fatal]
  - Pneumonia [Unknown]
  - Influenza [Unknown]

NARRATIVE: CASE EVENT DATE: 20240922
